FAERS Safety Report 8139349-8 (Version None)
Quarter: 2012Q1

REPORT INFORMATION
  Report Type: 
  Country: None (occurrence: None)
  Receive Date: 20120215
  Receipt Date: 20110715
  Transmission Date: 20120608
  Serious: No
  Sender: FDA-Public Use
  Company Number: US-MYLANLABS-2011S1014806

PATIENT
  Age: 11 Year
  Sex: Male
  Weight: 32.66 kg

DRUGS (3)
  1. ALBUTEROL [Concomitant]
     Indication: ASTHMA
     Route: 055
  2. IPRATROPIUM BROMIDE [Suspect]
     Indication: ASTHMA
     Route: 055
     Dates: start: 20090101
  3. PULMICORT-100 [Concomitant]
     Indication: ASTHMA
     Route: 055

REACTIONS (1)
  - DYSPNOEA [None]
